FAERS Safety Report 24968810 (Version 1)
Quarter: 2025Q1

REPORT INFORMATION
  Report Type: Spontaneous
  Country: US (occurrence: US)
  Receive Date: 20250214
  Receipt Date: 20250214
  Transmission Date: 20250409
  Serious: No
  Sender: ALEXION PHARMACEUTICALS
  Company Number: US-AstraZeneca-CH-00802460A

PATIENT

DRUGS (1)
  1. KANUMA [Suspect]
     Active Substance: SEBELIPASE ALFA
     Indication: Lysosomal acid lipase deficiency
     Dosage: 5 MILLILITRE PER KILOGRAM, QW

REACTIONS (3)
  - Lysosomal acid lipase deficiency [Not Recovered/Not Resolved]
  - Vascular calcification [Not Recovered/Not Resolved]
  - Lymphadenopathy [Not Recovered/Not Resolved]
